FAERS Safety Report 4688982-4 (Version None)
Quarter: 2005Q2

REPORT INFORMATION
  Report Type: 
  Country: None (occurrence: None)
  Receive Date: 20050613
  Receipt Date: 20050310
  Transmission Date: 20051028
  Serious: Yes (Hospitalization, Other)
  Sender: FDA-Public Use
  Company Number: US-MERCK-0503USA02219

PATIENT
  Sex: Male
  Weight: 82 kg

DRUGS (10)
  1. VIOXX [Suspect]
     Indication: ARTHRALGIA
     Route: 048
     Dates: start: 20000101, end: 20030101
  2. CARDIZEM [Concomitant]
     Indication: CARDIAC DISORDER
     Route: 065
     Dates: end: 20020101
  3. CARDIZEM [Concomitant]
     Indication: HYPERTENSION
     Route: 065
     Dates: end: 20020101
  4. MOTRIN [Concomitant]
     Indication: PAIN
     Route: 065
  5. VICODIN [Concomitant]
     Indication: PAIN
     Route: 065
  6. MORPHINE [Concomitant]
     Indication: PAIN
     Route: 065
  7. CARISOPRODOL [Concomitant]
     Indication: PAIN
     Route: 065
  8. CARISOPRODOL [Concomitant]
     Indication: MUSCLE RELAXANT THERAPY
     Route: 065
  9. LITHIUM ACETATE [Concomitant]
     Route: 065
  10. DILANTIN [Concomitant]
     Route: 065

REACTIONS (13)
  - ANXIETY [None]
  - CEREBROVASCULAR ACCIDENT [None]
  - CONVULSION [None]
  - GASTROOESOPHAGEAL REFLUX DISEASE [None]
  - HAEMATOCHEZIA [None]
  - INTESTINAL OBSTRUCTION [None]
  - MYOCARDIAL INFARCTION [None]
  - NERVOUS SYSTEM DISORDER [None]
  - OEDEMA [None]
  - PEPTIC ULCER [None]
  - PERIPHERAL VASCULAR DISORDER [None]
  - RENAL DISORDER [None]
  - SLEEP APNOEA SYNDROME [None]
